FAERS Safety Report 8929100 (Version 1)
Quarter: 2012Q4

REPORT INFORMATION
  Report Type: 
  Country: US (occurrence: US)
  Receive Date: 20121128
  Receipt Date: 20121128
  Transmission Date: 20130627
  Serious: No
  Sender: FDA-Public Use
  Company Number: US-BIOGENIDEC-2012BI053959

PATIENT
  Age: 33 Year
  Sex: Female

DRUGS (1)
  1. AVONEX [Suspect]
     Indication: MULTIPLE SCLEROSIS
     Route: 030
     Dates: start: 20120823

REACTIONS (5)
  - Tremor [Not Recovered/Not Resolved]
  - Muscle rigidity [Not Recovered/Not Resolved]
  - Influenza [Not Recovered/Not Resolved]
  - Muscle spasms [Not Recovered/Not Resolved]
  - Influenza like illness [Not Recovered/Not Resolved]
